FAERS Safety Report 21173465 (Version 1)
Quarter: 2022Q3

REPORT INFORMATION
  Report Type: Spontaneous
  Country: US (occurrence: US)
  Receive Date: 20220804
  Receipt Date: 20220804
  Transmission Date: 20221027
  Serious: Yes (Other)
  Sender: FDA-Public Use
  Company Number: US-IGSA-BIG0019880

PATIENT
  Age: 27 Year
  Sex: Female

DRUGS (5)
  1. HUMAN IMMUNOGLOBULIN G [Suspect]
     Active Substance: HUMAN IMMUNOGLOBULIN G
     Indication: Optic neuritis
     Dosage: UNK UNK, UNKNOWN
     Route: 042
  2. HUMAN IMMUNOGLOBULIN G [Suspect]
     Active Substance: HUMAN IMMUNOGLOBULIN G
     Indication: Behcet^s syndrome
  3. HUMAN IMMUNOGLOBULIN G [Suspect]
     Active Substance: HUMAN IMMUNOGLOBULIN G
     Indication: Off label use
  4. PLASMA-PLEX [Suspect]
     Active Substance: PLASMA PROTEIN FRACTION (HUMAN)
     Indication: Optic neuritis
  5. PLASMA-PLEX [Suspect]
     Active Substance: PLASMA PROTEIN FRACTION (HUMAN)
     Indication: Behcet^s syndrome

REACTIONS (3)
  - Vascular device infection [Unknown]
  - Gastric ulcer [Unknown]
  - Osteonecrosis [Unknown]
